FAERS Safety Report 7369953-6 (Version None)
Quarter: 2011Q1

REPORT INFORMATION
  Report Type: 
  Country: None (occurrence: None)
  Receive Date: 20110318
  Receipt Date: 20110318
  Transmission Date: 20110831
  Serious: Yes (Death)
  Sender: FDA-Public Use
  Company Number: None

PATIENT
  Age: 74 Year
  Sex: Female

DRUGS (9)
  1. DEXAMETHASONE [Concomitant]
  2. REVLIMID [Suspect]
     Indication: MULTIPLE MYELOMA
     Dosage: REVLIMID 10MG DAILY ORALLY
     Route: 048
     Dates: start: 20100101, end: 20100401
  3. TRAZODONE HCL [Concomitant]
  4. PREDNISOLONE [Concomitant]
  5. FAMOTIDINE [Concomitant]
  6. FLUOXETINE [Concomitant]
  7. ALENDRONATE [Concomitant]
  8. POTASSIUM CHLORIDE [Concomitant]
  9. DOCUSATE [Concomitant]

REACTIONS (1)
  - DEATH [None]
